FAERS Safety Report 9828073 (Version 1)
Quarter: 2014Q1

REPORT INFORMATION
  Report Type: Spontaneous
  Country: US (occurrence: US)
  Receive Date: 20140117
  Receipt Date: 20140117
  Transmission Date: 20141002
  Serious: No
  Sender: FDA-Public Use
  Company Number: US-GILEAD-2010-0032177

PATIENT
  Sex: Female

DRUGS (3)
  1. ATRIPLA [Suspect]
     Indication: HIV INFECTION
  2. XYZAL [Concomitant]
  3. VITAMINS [Concomitant]

REACTIONS (6)
  - Abnormal dreams [Unknown]
  - Nausea [Unknown]
  - Vomiting [Unknown]
  - Headache [Unknown]
  - Dizziness [Unknown]
  - Balance disorder [Unknown]
